FAERS Safety Report 15470912 (Version 2)
Quarter: 2019Q1

REPORT INFORMATION
  Report Type: Report from Study
  Country: JP (occurrence: JP)
  Receive Date: 20181006
  Receipt Date: 20190304
  Transmission Date: 20190417
  Serious: Yes (Life-Threatening, Hospitalization, Other)
  Sender: FDA-Public Use
  Company Number: JP-AMGEN-JPNSP2017134629

PATIENT
  Age: 68 Year
  Sex: Male
  Weight: 66 kg

DRUGS (5)
  1. CARFILZOMIB [Suspect]
     Active Substance: CARFILZOMIB
     Dosage: 56 MG/M2 (17/7/2017,18/7,24/7,25/7,17/8,18/8)
     Route: 041
     Dates: start: 20170717, end: 20170818
  2. DEXAMETHASONE. [Concomitant]
     Active Substance: DEXAMETHASONE
     Indication: PLASMA CELL MYELOMA
     Dosage: 8 MG/DAY (10/7/2017,17/7,24/7)
     Route: 065
     Dates: start: 20170710, end: 20170724
  3. DEXAMETHASONE. [Concomitant]
     Active Substance: DEXAMETHASONE
     Dosage: 4MG/DAY (11/7/2017,18/7,25/7,17/8,18/8)
     Route: 065
     Dates: start: 20170711, end: 20170811
  4. CARFILZOMIB [Suspect]
     Active Substance: CARFILZOMIB
     Indication: PLASMA CELL MYELOMA
     Dosage: 20 MG/M2 (10/07/2017, 11/07/2017)
     Route: 041
     Dates: start: 20170710, end: 20170711
  5. ASTRIC [Concomitant]
     Active Substance: ACYCLOVIR
     Indication: ANTIVIRAL PROPHYLAXIS
     Dosage: UNK
     Route: 065

REACTIONS (4)
  - Pneumonia [Recovering/Resolving]
  - Lymphangiosis carcinomatosa [Recovering/Resolving]
  - Platelet count decreased [Recovered/Resolved]
  - White blood cell count decreased [Recovered/Resolved]

NARRATIVE: CASE EVENT DATE: 20170719
